FAERS Safety Report 7949824-4 (Version None)
Quarter: 2011Q4

REPORT INFORMATION
  Report Type: 
  Country: None (occurrence: None)
  Receive Date: 20111130
  Receipt Date: 20111121
  Transmission Date: 20120403
  Serious: Yes (Hospitalization, Other)
  Sender: FDA-Public Use
  Company Number: US-ASTRAZENECA-2011SE71059

PATIENT
  Age: 770 Month
  Sex: Male
  Weight: 102.5 kg

DRUGS (11)
  1. SOTALOL HCL [Concomitant]
     Route: 048
     Dates: start: 20110701, end: 20111001
  2. CINNAMON [Concomitant]
     Route: 048
  3. VITAMIN E [Concomitant]
     Dosage: 1000 UNIT 1 CAPSULE DAILY
     Route: 048
  4. METOPROLOL SUCCINATE [Suspect]
     Route: 048
  5. NITROSTAT [Concomitant]
     Indication: CHEST PAIN
     Route: 060
  6. CRESTOR [Suspect]
     Route: 048
  7. ASPIRIN [Concomitant]
     Route: 048
  8. ASCORBIC ACID [Concomitant]
     Route: 048
  9. ASPIRIN [Concomitant]
  10. LOSARTAN POTASSIUM [Concomitant]
     Route: 048
  11. PLAVIX [Concomitant]
     Route: 048

REACTIONS (13)
  - UPPER-AIRWAY COUGH SYNDROME [None]
  - ACUTE MYOCARDIAL INFARCTION [None]
  - HYPERTENSION [None]
  - COLONIC POLYP [None]
  - COUGH [None]
  - FATIGUE [None]
  - RHINITIS [None]
  - HEART RATE IRREGULAR [None]
  - ACUTE SINUSITIS [None]
  - HYPERLIPIDAEMIA [None]
  - WHEEZING [None]
  - ATRIAL FIBRILLATION [None]
  - ABDOMINAL PAIN [None]
